FAERS Safety Report 13818907 (Version 1)
Quarter: 2017Q3

REPORT INFORMATION
  Report Type: Report from Study
  Country: US (occurrence: US)
  Receive Date: 20170801
  Receipt Date: 20170801
  Transmission Date: 20171127
  Serious: Yes (Hospitalization, Other)
  Sender: FDA-Public Use
  Company Number: US-AMGEN-USASL2017114348

PATIENT
  Age: 60 Year
  Sex: Female

DRUGS (1)
  1. REPATHA [Suspect]
     Active Substance: EVOLOCUMAB
     Indication: HYPERCHOLESTEROLAEMIA
     Dosage: 140 MG, Q2WK
     Route: 065
     Dates: end: 2017

REACTIONS (4)
  - Pneumothorax [Unknown]
  - Electrocardiogram abnormal [Unknown]
  - Nasopharyngitis [Unknown]
  - Lung disorder [Unknown]

NARRATIVE: CASE EVENT DATE: 201706
